FAERS Safety Report 4903524-3 (Version None)
Quarter: 2006Q1

REPORT INFORMATION
  Report Type: 
  Country: None (occurrence: None)
  Receive Date: 20060208
  Receipt Date: 20060131
  Transmission Date: 20060701
  Serious: Yes (Hospitalization)
  Sender: FDA-Public Use
  Company Number: US-JNJFOC-20050806195

PATIENT
  Sex: Male

DRUGS (8)
  1. CONCENTRATED TYLENOL INFANTS' GRAPE [Suspect]
  2. CONCENTRATED TYLENOL INFANTS' GRAPE [Suspect]
     Indication: OTITIS MEDIA CHRONIC
     Dosage: 160MG Q4-6HRS
  3. TYLENOL (CAPLET) [Suspect]
  4. TYLENOL (CAPLET) [Suspect]
     Indication: OTITIS MEDIA CHRONIC
     Dosage: 160MG Q 4-6HRS
  5. MOTRIN [Concomitant]
     Indication: OTITIS MEDIA CHRONIC
  6. CEFUROXIME [Concomitant]
  7. AUGMENTIN '125' [Concomitant]
  8. AUGMENTIN '125' [Concomitant]

REACTIONS (3)
  - ALANINE AMINOTRANSFERASE INCREASED [None]
  - ASPARTATE AMINOTRANSFERASE INCREASED [None]
  - DRUG TOXICITY [None]
